FAERS Safety Report 25682016 (Version 1)
Quarter: 2025Q3

REPORT INFORMATION
  Report Type: Spontaneous
  Country: US (occurrence: None)
  Receive Date: 20250814
  Receipt Date: 20250814
  Transmission Date: 20251021
  Serious: No
  Sender: FDA-CTU
  Company Number: None

PATIENT
  Age: 60 Year
  Sex: Male
  Weight: 72 kg

DRUGS (2)
  1. DUPIXENT [Suspect]
     Active Substance: DUPILUMAB
     Indication: Neurodermatitis
     Dosage: FREQUENCY : EVERY OTHER WEEK;?
     Route: 058
  2. RUXOLITINIB [Concomitant]
     Active Substance: RUXOLITINIB

REACTIONS (5)
  - Injection site erythema [None]
  - Injection site swelling [None]
  - Injection site warmth [None]
  - Injection site pain [None]
  - Injection site induration [None]

NARRATIVE: CASE EVENT DATE: 20250807
